FAERS Safety Report 12772347 (Version 1)
Quarter: 2016Q3

REPORT INFORMATION
  Report Type: Spontaneous
  Country: FR (occurrence: FR)
  Receive Date: 20160922
  Receipt Date: 20160922
  Transmission Date: 20161109
  Serious: Yes (Other)
  Sender: FDA-Public Use
  Company Number: FR-MYLANLABS-2016M1040158

PATIENT

DRUGS (2)
  1. MYLAN-QUETIAPINE [Suspect]
     Active Substance: QUETIAPINE
     Indication: PRODUCT USED FOR UNKNOWN INDICATION
     Dosage: 700 MG, QD (300 MG IN THE MORNING AND 400 MG AT NIGHT)
     Dates: start: 201511
  2. MIANSERIN [Concomitant]
     Active Substance: MIANSERIN
     Indication: PRODUCT USED FOR UNKNOWN INDICATION
     Dosage: UNK
     Dates: start: 201511

REACTIONS (5)
  - Decreased appetite [Unknown]
  - General physical health deterioration [Unknown]
  - Neoplasm malignant [Unknown]
  - Weight decreased [Unknown]
  - Fatigue [Unknown]

NARRATIVE: CASE EVENT DATE: 2016
